FAERS Safety Report 8094513-1 (Version None)
Quarter: 2012Q1

REPORT INFORMATION
  Report Type: 
  Country: None (occurrence: None)
  Receive Date: 20120131
  Receipt Date: 20120123
  Transmission Date: 20120608
  Serious: Yes (Hospitalization, Other)
  Sender: FDA-Public Use
  Company Number: US-JNJFOC-20120109908

PATIENT
  Sex: Female
  Weight: 74.84 kg

DRUGS (18)
  1. TOPAMAX [Suspect]
     Route: 048
     Dates: start: 20090101
  2. VITAMIN [Concomitant]
     Indication: CONVULSION
     Route: 065
  3. TOPAMAX [Suspect]
     Route: 048
  4. LEXAPRO [Concomitant]
     Indication: IMPAIRED DRIVING ABILITY
     Route: 065
  5. VITAMIN [Concomitant]
     Indication: IMPAIRED DRIVING ABILITY
     Route: 065
  6. DILANTIN [Suspect]
     Route: 048
  7. AMITRIPTYLINE HCL [Concomitant]
     Indication: CONVULSION
     Route: 065
  8. LEXAPRO [Concomitant]
     Indication: CONVULSION
     Route: 065
  9. CITALOPRAM [Concomitant]
     Indication: IMPAIRED DRIVING ABILITY
     Route: 065
  10. AMITRIPTYLINE HCL [Concomitant]
     Indication: IMPAIRED DRIVING ABILITY
     Route: 065
  11. DILANTIN [Suspect]
     Indication: CONVULSION
     Route: 048
     Dates: start: 20080101
  12. AMITRIPTYLINE HCL [Concomitant]
     Indication: ANXIETY
     Route: 065
  13. TOPAMAX [Suspect]
     Route: 048
  14. LEXAPRO [Concomitant]
     Indication: ANXIETY
     Route: 065
  15. CITALOPRAM [Concomitant]
     Indication: ANXIETY
     Route: 065
  16. CITALOPRAM [Concomitant]
     Indication: CONVULSION
     Route: 065
  17. VITAMIN [Concomitant]
     Indication: ANXIETY
     Route: 065
  18. TOPAMAX [Suspect]
     Indication: PRODUCT USED FOR UNKNOWN INDICATION
     Route: 048

REACTIONS (9)
  - PRODUCT QUALITY ISSUE [None]
  - CONVULSION [None]
  - ANTICONVULSANT DRUG LEVEL INCREASED [None]
  - GAIT DISTURBANCE [None]
  - DIZZINESS [None]
  - ANTICONVULSANT DRUG LEVEL DECREASED [None]
  - DYSPNOEA [None]
  - ALOPECIA [None]
  - NAIL DISORDER [None]
